FAERS Safety Report 5737854-2 (Version None)
Quarter: 2008Q2

REPORT INFORMATION
  Report Type: 
  Country: None (occurrence: None)
  Receive Date: 20080514
  Receipt Date: 20080514
  Transmission Date: 20081010
  Serious: Yes (Congenital Anomaly, Other)
  Sender: FDA-Public Use
  Company Number: GB-ABBOTT-08P-167-0450331-00

PATIENT
  Age: 1 Day
  Sex: Male

DRUGS (1)
  1. VALPROIC ACID [Suspect]
     Indication: DRUG EXPOSURE DURING PREGNANCY
     Route: 064

REACTIONS (49)
  - ABNORMAL BEHAVIOUR [None]
  - AGGRESSION [None]
  - ANKYLOGLOSSIA CONGENITAL [None]
  - ARTHROPATHY [None]
  - ASOCIAL BEHAVIOUR [None]
  - ASTHMA [None]
  - ATTENTION DEFICIT/HYPERACTIVITY DISORDER [None]
  - AUTISM SPECTRUM DISORDER [None]
  - CHEST DISCOMFORT [None]
  - CLUMSY CHILD SYNDROME [None]
  - COMMUNICATION DISORDER [None]
  - CONGENITAL NAIL DISORDER [None]
  - CONGENITAL NOSE MALFORMATION [None]
  - CONGENITAL SKIN DISORDER [None]
  - CONSTIPATION [None]
  - COUGH [None]
  - DEAFNESS [None]
  - DEMYELINATION [None]
  - DERMOID CYST [None]
  - DEVELOPMENTAL DELAY [None]
  - DISTRACTIBILITY [None]
  - DISTURBANCE IN ATTENTION [None]
  - DRUG EXPOSURE DURING PREGNANCY [None]
  - DYSARTHRIA [None]
  - DYSMORPHISM [None]
  - ENURESIS [None]
  - EXPRESSIVE LANGUAGE DISORDER [None]
  - FAECAL INCONTINENCE [None]
  - FALL [None]
  - FOETAL ANTICONVULSANT SYNDROME [None]
  - FOETAL DISTRESS SYNDROME [None]
  - FOOT DEFORMITY [None]
  - HIP DYSPLASIA [None]
  - HYPERACUSIS [None]
  - HYPOKINESIA [None]
  - HYPOTONIA [None]
  - INSOMNIA [None]
  - LEARNING DISABILITY [None]
  - LEARNING DISORDER [None]
  - LIP DISORDER [None]
  - MENTAL IMPAIRMENT [None]
  - MIDDLE EAR EFFUSION [None]
  - OTITIS MEDIA [None]
  - PHONOLOGICAL DISORDER [None]
  - PSYCHOMOTOR SKILLS IMPAIRED [None]
  - READING DISORDER [None]
  - RESPIRATORY DISORDER [None]
  - SPEECH DISORDER DEVELOPMENTAL [None]
  - WHEEZING [None]
